FAERS Safety Report 6008984-5 (Version None)
Quarter: 2008Q4

REPORT INFORMATION
  Report Type: 
  Country: None (occurrence: None)
  Receive Date: 20081216
  Receipt Date: 20081204
  Transmission Date: 20090506
  Serious: Yes (Other)
  Sender: FDA-Public Use
  Company Number: 2008US003330

PATIENT
  Age: 85 Year
  Sex: Female
  Weight: 54 kg

DRUGS (1)
  1. LEXISCAN [Suspect]
     Indication: SCAN MYOCARDIAL PERFUSION

REACTIONS (6)
  - BRADYCARDIA [None]
  - COLD SWEAT [None]
  - FEELING ABNORMAL [None]
  - MALAISE [None]
  - SENSATION OF FOREIGN BODY [None]
  - UNRESPONSIVE TO STIMULI [None]
